FAERS Safety Report 18278107 (Version 15)
Quarter: 2021Q2

REPORT INFORMATION
  Report Type: Report from Study
  Country: BR (occurrence: BR)
  Receive Date: 20200917
  Receipt Date: 20210407
  Transmission Date: 20210717
  Serious: Yes (Death, Hospitalization)
  Sender: FDA-Public Use
  Company Number: BR-ROCHE-2675807

PATIENT
  Age: 57 Year
  Sex: Female
  Weight: 66.4 kg

DRUGS (36)
  1. INSULIN REGULAR [Concomitant]
     Active Substance: INSULIN NOS
     Dates: start: 20201013, end: 20201016
  2. DIPYRONE [Concomitant]
     Active Substance: DIPYRONE
     Indication: PAIN IN EXTREMITY
  3. GLUCOSE [Concomitant]
     Active Substance: DEXTROSE
     Dosage: SOLUTION 10%
     Dates: start: 20201016, end: 20201016
  4. SULFAMETOXAZOL + TRIMETOPRIMA [Concomitant]
     Active Substance: SULFAMETHOXAZOLE\TRIMETHOPRIM
     Dosage: 4 AMPULE
     Dates: start: 20201017, end: 20201017
  5. SULFAMETOXAZOL + TRIMETOPRIMA [Concomitant]
     Active Substance: SULFAMETHOXAZOLE\TRIMETHOPRIM
     Dosage: 4 AMPULE
     Dates: start: 20201011
  6. MIDAZOLAM. [Concomitant]
     Active Substance: MIDAZOLAM
     Dates: start: 20201016, end: 20201016
  7. GABAPENTINA [Concomitant]
     Active Substance: GABAPENTIN
     Indication: CHEST PAIN
     Dates: start: 2017, end: 20200930
  8. MAGNESIUM [Concomitant]
     Active Substance: MAGNESIUM
     Indication: HYPOMAGNESAEMIA
     Dates: start: 20200831, end: 20200903
  9. SULFAMETOXAZOL + TRIMETOPRIMA [Concomitant]
     Active Substance: SULFAMETHOXAZOLE\TRIMETHOPRIM
     Dosage: 4 AMPULE
     Dates: start: 20201014, end: 20201015
  10. SODIUM BICARBONATE. [Concomitant]
     Active Substance: SODIUM BICARBONATE
     Indication: COVID-19
     Dates: start: 20201016, end: 20201016
  11. ENOXAPARIN [Concomitant]
     Active Substance: ENOXAPARIN
     Indication: VENA CAVA THROMBOSIS
     Dates: start: 2019
  12. CELECOXIB. [Concomitant]
     Active Substance: CELECOXIB
     Indication: PAIN IN EXTREMITY
     Dates: start: 20200830, end: 20200903
  13. MIDAZOLAM. [Concomitant]
     Active Substance: MIDAZOLAM
     Indication: COVID-19
     Dates: start: 20201014, end: 20201014
  14. GLUCOSE [Concomitant]
     Active Substance: DEXTROSE
     Indication: COVID-19
     Dates: start: 20201012, end: 20201013
  15. GLUCOSE [Concomitant]
     Active Substance: DEXTROSE
     Dosage: SOLUTION 10%
     Dates: start: 20201012, end: 20201013
  16. GLICAZIDA [Concomitant]
     Active Substance: GLICLAZIDE
     Indication: TYPE 2 DIABETES MELLITUS
     Dates: start: 2007, end: 20200909
  17. FENTANYL TRANSDERMAL SYSTEM [Concomitant]
     Active Substance: FENTANYL
     Indication: CHEST PAIN
     Dates: start: 2017, end: 20201011
  18. SULFAMETOXAZOL + TRIMETOPRIMA [Concomitant]
     Active Substance: SULFAMETHOXAZOLE\TRIMETHOPRIM
     Indication: COVID-19
     Dosage: 4 AMPULE
     Dates: start: 20201010, end: 20201011
  19. SULFAMETOXAZOL + TRIMETOPRIMA [Concomitant]
     Active Substance: SULFAMETHOXAZOLE\TRIMETHOPRIM
     Dosage: 4 AMPULE
     Dates: start: 20201012, end: 20201012
  20. CHLORHEXIDINE [Concomitant]
     Active Substance: CHLORHEXIDINE
     Indication: COVID-19
     Dates: start: 20201014, end: 20201014
  21. DEXMEDETOMIDINE. [Concomitant]
     Active Substance: DEXMEDETOMIDINE
     Indication: COVID-19
     Dates: start: 20201013, end: 20201017
  22. LOPERAMIDE [Concomitant]
     Active Substance: LOPERAMIDE
     Indication: DIARRHOEA
     Dates: start: 20200903, end: 20200903
  23. INSULIN REGULAR [Concomitant]
     Active Substance: INSULIN NOS
     Indication: TYPE 2 DIABETES MELLITUS
     Dates: start: 20200204
  24. MORPHINE [Concomitant]
     Active Substance: MORPHINE
     Indication: CHEST PAIN
     Dates: start: 2017
  25. NPH INSULIN [Concomitant]
     Active Substance: INSULIN BEEF
     Indication: TYPE 2 DIABETES MELLITUS
     Dates: start: 20200204
  26. LORAZEPAM. [Concomitant]
     Active Substance: LORAZEPAM
     Indication: INSOMNIA
     Dates: start: 2017, end: 20200915
  27. LACTULOSE. [Concomitant]
     Active Substance: LACTULOSE
     Indication: CONSTIPATION PROPHYLAXIS
     Dates: start: 2017
  28. DIPYRONE [Concomitant]
     Active Substance: DIPYRONE
     Indication: CHEST PAIN
     Dates: start: 2017, end: 20200828
  29. VASOPRESSIN. [Concomitant]
     Active Substance: VASOPRESSIN
     Indication: COVID-19
     Dates: start: 20201016, end: 20201017
  30. GLUCOSE [Concomitant]
     Active Substance: DEXTROSE
     Dates: start: 20201016, end: 20201016
  31. MAGNESIUM SULFATE. [Concomitant]
     Active Substance: MAGNESIUM SULFATE
     Indication: COVID-19
     Dates: start: 20201014, end: 20201014
  32. MAGNESIUM SULFATE. [Concomitant]
     Active Substance: MAGNESIUM SULFATE
     Dates: start: 20201016, end: 20201016
  33. RO7122290 (FAP?4?1BBL MAB) [Suspect]
     Active Substance: INVESTIGATIONAL PRODUCT
     Indication: NEOPLASM
     Dosage: FIRST DOSE ADMINISTERED 250 MG, LAST DOSE PRIOR TO AE AND SAE 250 MG.?ON 31/AUG/2020, THE PATIENT RE
     Route: 041
     Dates: start: 20200831
  34. ATEZOLIZUMAB. [Suspect]
     Active Substance: ATEZOLIZUMAB
     Indication: NEOPLASM
     Dosage: FIRST DOSE 1200 MG, LAST DOSE PRIOR TO AE AND SAE 1200 MG.?TOTAL VOLUME PRIOR TO AE AND SAE 270 ML.
     Route: 041
     Dates: start: 20200831
  35. ONDANSETRON [Concomitant]
     Active Substance: ONDANSETRON
     Indication: NAUSEA
     Dates: start: 2017, end: 20200909
  36. IPRATROPIUM [Concomitant]
     Active Substance: IPRATROPIUM
     Indication: DYSPNOEA
     Dates: start: 202002, end: 20200909

REACTIONS (3)
  - Systemic inflammatory response syndrome [Recovering/Resolving]
  - Immune-mediated hepatitis [Recovering/Resolving]
  - Neutropenia [Recovering/Resolving]

NARRATIVE: CASE EVENT DATE: 20200908
